FAERS Safety Report 24112986 (Version 1)
Quarter: 2024Q3

REPORT INFORMATION
  Report Type: Spontaneous
  Country: US (occurrence: US)
  Receive Date: 20240719
  Receipt Date: 20240719
  Transmission Date: 20241017
  Serious: No
  Sender: DAIICHI
  Company Number: US-DAIICHI SANKYO, INC.-DSU-2024-136259AA

PATIENT
  Age: 62 Year
  Sex: Female

DRUGS (1)
  1. ENHERTU [Suspect]
     Active Substance: FAM-TRASTUZUMAB DERUXTECAN-NXKI
     Indication: HER2 mutant non-small cell lung cancer
     Dosage: UNK MG
     Route: 065
     Dates: start: 202304

REACTIONS (4)
  - Ejection fraction decreased [Recovered/Resolved]
  - Cough [Unknown]
  - Lung consolidation [Unknown]
  - Positron emission tomogram abnormal [Unknown]
